FAERS Safety Report 6402299-9 (Version None)
Quarter: 2009Q4

REPORT INFORMATION
  Report Type: 
  Country: None (occurrence: None)
  Receive Date: 20091015
  Receipt Date: 20091009
  Transmission Date: 20100525
  Serious: Yes (Hospitalization)
  Sender: FDA-Public Use
  Company Number: PHHO2009KR12495

PATIENT
  Sex: Male
  Weight: 40 kg

DRUGS (3)
  1. ACLASTA/ZOLEDRONATE T29581+A+ [Suspect]
     Indication: OSTEONECROSIS
     Dosage: 5 MG
     Route: 042
     Dates: start: 20090915
  2. VITAMIN D [Concomitant]
  3. CALCIUM [Concomitant]

REACTIONS (5)
  - ARTHRALGIA [None]
  - BONE DISORDER [None]
  - DISEASE PROGRESSION [None]
  - HIP ARTHROPLASTY [None]
  - OSTEONECROSIS [None]
